FAERS Safety Report 8310735-6 (Version None)
Quarter: 2012Q2

REPORT INFORMATION
  Report Type: 
  Country: None (occurrence: None)
  Receive Date: 20120425
  Receipt Date: 20120419
  Transmission Date: 20120825
  Serious: Yes (Death, Hospitalization)
  Sender: FDA-Public Use
  Company Number: US-CELGENEUS-163-21880-12042325

PATIENT
  Sex: Male
  Weight: 86.4 kg

DRUGS (41)
  1. TEMSIROLIMUS [Suspect]
     Dosage: 25 MILLIGRAM
     Route: 041
     Dates: start: 20120312, end: 20120328
  2. ATIVAN [Concomitant]
     Indication: ANXIETY
     Dosage: .25 MILLIGRAM
     Route: 065
  3. MS CONTIN [Concomitant]
     Indication: PAIN
     Dosage: 30 MILLIGRAM
     Route: 065
  4. SENNA [Concomitant]
     Indication: CONSTIPATION
     Dosage: 2 TABLET
     Route: 048
  5. FLOMAX [Concomitant]
     Indication: PROSTATIC DISORDER
     Dosage: .4 MILLIGRAM
     Route: 065
  6. HALOPERIDOL [Concomitant]
     Indication: VOMITING
  7. VALACYCLOVIR [Concomitant]
     Indication: ANTI-INFECTIVE THERAPY
     Dosage: 1 GRAM
     Route: 048
  8. CEFEPIME [Concomitant]
     Route: 065
  9. THORAZINE [Concomitant]
     Indication: AGITATION
     Dosage: 25 MILLIGRAM
     Route: 065
  10. ASPIRIN [Concomitant]
     Dosage: 81 MILLIGRAM
     Route: 065
  11. ZYPREXA [Concomitant]
     Dosage: 5 MILLIGRAM
     Route: 065
  12. CIPROFLOXACIN [Concomitant]
     Indication: ANTI-INFECTIVE THERAPY
     Dosage: 500 MILLIGRAM
     Route: 048
  13. THORAZINE [Concomitant]
     Indication: RESTLESSNESS
     Dosage: 50 MILLIGRAM
     Route: 065
  14. REGLAN [Concomitant]
     Indication: VOMITING
  15. SINGULAIR [Concomitant]
     Dosage: 10 MILLIGRAM
     Route: 065
  16. LACTULOSE [Concomitant]
     Indication: CONSTIPATION
     Dosage: 30 MILLILITER
     Route: 048
  17. HYDROMORPHONE HCL [Concomitant]
     Route: 065
  18. REVLIMID [Suspect]
     Dosage: 20 MILLIGRAM
     Route: 048
     Dates: start: 20120312, end: 20120328
  19. LEVAQUIN [Concomitant]
     Indication: URINARY TRACT INFECTION
     Dosage: 750 MILLIGRAM
     Route: 065
  20. MAGNESIUM OXIDE [Concomitant]
     Dosage: 500 MILLIGRAM
     Route: 065
  21. MORPHINE SULFATE [Concomitant]
     Indication: PAIN
     Dosage: 7.5-15MG
     Route: 065
  22. ZOFRAN [Concomitant]
     Indication: VOMITING
  23. ALBUTEROL [Concomitant]
     Dosage: 2.5MG/3ML
     Route: 055
  24. HALOPERIDOL [Concomitant]
     Indication: RESTLESSNESS
  25. METRONIDAZOLE [Concomitant]
     Route: 065
  26. O2 [Concomitant]
     Route: 065
  27. TAMIFLU [Concomitant]
     Route: 065
  28. HYDRALAZINE HCL [Concomitant]
     Indication: HYPERTENSION
     Route: 065
  29. ZYRTEC [Concomitant]
     Dosage: 10 MILLIGRAM
     Route: 065
  30. ZOFRAN [Concomitant]
     Indication: NAUSEA
     Dosage: 8 MILLIGRAM
     Route: 065
  31. HALOPERIDOL [Concomitant]
     Indication: NAUSEA
  32. NEXIUM [Concomitant]
     Dosage: 40 MILLIGRAM
     Route: 065
  33. REGLAN [Concomitant]
     Indication: NAUSEA
     Dosage: 10 MILLIGRAM
     Route: 065
  34. MS CONTIN [Concomitant]
     Dosage: 15 MILLIGRAM
     Route: 065
  35. HALOPERIDOL [Concomitant]
     Indication: AGITATION
     Dosage: 2 MILLIGRAM
     Route: 041
  36. OMEPRAZOLE [Concomitant]
     Dosage: 20 MILLIGRAM
     Route: 048
  37. VANCOMYCIN [Concomitant]
     Route: 065
  38. ZIAC [Concomitant]
     Dosage: 10/6.25MG
     Route: 065
  39. PROSCAR [Concomitant]
     Dosage: 5 MILLIGRAM
     Route: 065
  40. MIRALAX [Concomitant]
     Indication: CONSTIPATION
     Dosage: 1 SCOOP
     Route: 065
  41. HALOPERIDOL [Concomitant]
     Indication: ANXIETY
     Dosage: 2 MILLIGRAM
     Route: 041

REACTIONS (5)
  - PYREXIA [None]
  - NEUROENDOCRINE CARCINOMA OF THE SKIN [None]
  - CHEST PAIN [None]
  - ABDOMINAL PAIN [None]
  - DYSPNOEA [None]
